FAERS Safety Report 7702907-6 (Version None)
Quarter: 2011Q3

REPORT INFORMATION
  Report Type: 
  Country: None (occurrence: None)
  Receive Date: 20110823
  Receipt Date: 20110815
  Transmission Date: 20111222
  Serious: Yes (Hospitalization, Other)
  Sender: FDA-Public Use
  Company Number: US-BAYER-2011-014305

PATIENT
  Age: 24 Year
  Sex: Female
  Weight: 74.83 kg

DRUGS (10)
  1. YAZ [Suspect]
     Indication: CONTRACEPTION
     Dosage: UNK UNK, QD
     Route: 048
     Dates: start: 20060101, end: 20100501
  2. TRAZODONE HCL [Concomitant]
     Dosage: 50 MG, 1-2 EVERY HOUR OF SLEEP
     Route: 048
  3. HYDROCODONE BITARTRATE [Concomitant]
     Route: 048
  4. LEXAPRO [Concomitant]
     Dosage: 20 MG, QD
     Route: 048
  5. TOPAMAX [Concomitant]
     Indication: HEADACHE
     Dosage: 50 MG, UNK
     Route: 048
  6. SKELAXIN [Concomitant]
     Dosage: 800 MG, UNK
     Route: 048
  7. CENTRALLY ACTING SYMPATHOMIMETICS [Concomitant]
     Dosage: 60 MG, QD
     Route: 048
  8. MECLIZINE [Concomitant]
     Dosage: 25 MG, PRN
     Route: 048
  9. LAXATIVES [Concomitant]
     Route: 048
  10. VITAMIN D [Concomitant]
     Dosage: 2000 IU, QD
     Route: 048

REACTIONS (3)
  - PULMONARY EMBOLISM [None]
  - DEEP VEIN THROMBOSIS [None]
  - PAIN [None]
